FAERS Safety Report 18141450 (Version 1)
Quarter: 2020Q3

REPORT INFORMATION
  Report Type: Report from Study
  Country: CA (occurrence: CA)
  Receive Date: 20200812
  Receipt Date: 20200812
  Transmission Date: 20201103
  Serious: Yes (Death, Hospitalization, Other)
  Sender: FDA-Public Use
  Company Number: CA-MYLANLABS-2019M1113975

PATIENT
  Sex: Female
  Weight: 91.17 kg

DRUGS (17)
  1. BETAHISTINE HYDROCHLORIDE [Concomitant]
     Active Substance: BETAHISTINE HYDROCHLORIDE
     Dosage: UNK
     Route: 048
     Dates: start: 20191007
  2. DIVALPROEX [Concomitant]
     Active Substance: DIVALPROEX SODIUM
     Dosage: 1 TABLET TWO TIMES DAILY (BID)
     Route: 048
     Dates: start: 20191018
  3. EPIPEN [Concomitant]
     Active Substance: EPINEPHRINE
     Indication: ANAPHYLAXIS PROPHYLAXIS
     Dosage: 1 UNIT OTHER AS NEEDED
     Dates: start: 20191010
  4. SERTRALINE HCL [Concomitant]
     Active Substance: SERTRALINE HYDROCHLORIDE
     Dosage: 50 MILLIGRAM, AM (1 CAPSULE EVERY MORNING)
     Route: 048
     Dates: start: 20191018
  5. ESTROGEN [Concomitant]
     Active Substance: ESTROGENS
     Dosage: 1 TABLET EVERY OTHER DAY
     Route: 048
     Dates: start: 20191018
  6. CLOZAPINE. [Suspect]
     Active Substance: CLOZAPINE
     Dosage: 2 TABS (25 MG) EVERY DAY AT BEDTIME
     Route: 048
     Dates: start: 20191031
  7. ZOPICLONE [Concomitant]
     Active Substance: ZOPICLONE
     Dosage: 7.5 MILLIGRAM, PM (1 TABLET EVERY DAT AT BEDTIME)
     Route: 048
     Dates: start: 20191018
  8. TRAZODONE HYDROCHLORIDE. [Concomitant]
     Active Substance: TRAZODONE HYDROCHLORIDE
     Dosage: UNK
     Route: 048
     Dates: start: 20191007
  9. CLOZAPINE. [Suspect]
     Active Substance: CLOZAPINE
     Dosage: UNK
     Dates: start: 201308
  10. QUETIAPINE FUMARATE. [Concomitant]
     Active Substance: QUETIAPINE FUMARATE
     Dosage: 3.5 TABLETS EVERY DAY AT
     Route: 048
     Dates: start: 20191018
  11. ZOLOFT [Concomitant]
     Active Substance: SERTRALINE HYDROCHLORIDE
     Dosage: 25 MILLIGRAM, AM (1 CAPSULE EVERY MORNING)
     Route: 048
     Dates: start: 20191018
  12. CLOZAPINE. [Suspect]
     Active Substance: CLOZAPINE
     Indication: SCHIZOPHRENIA
     Dosage: UNK
     Dates: start: 201206
  13. PALIPERIDONE. [Concomitant]
     Active Substance: PALIPERIDONE
     Dosage: 2 TABLETS EVERY MORNING
     Route: 048
     Dates: start: 20191018
  14. ATIVAN [Concomitant]
     Active Substance: LORAZEPAM
     Dosage: UNK
     Dates: start: 20191007
  15. CLOZAPINE. [Suspect]
     Active Substance: CLOZAPINE
     Dosage: 3 TABS (100 MG) EVERY DAY AT BEDTIME
     Route: 048
     Dates: start: 20191031
  16. BETAHISTINE HYDROCHLORIDE [Concomitant]
     Active Substance: BETAHISTINE HYDROCHLORIDE
     Dosage: 8 MILLIGRAM, QD (1 TABLET ONCE DAILY)
     Route: 048
     Dates: start: 20191018
  17. ACETAMINOPHEN. [Concomitant]
     Active Substance: ACETAMINOPHEN
     Dosage: 1?2 TABLETS TWICE/WEEK AS
     Route: 048
     Dates: start: 20191004

REACTIONS (2)
  - Schizophrenia [Unknown]
  - Choking [Fatal]
